FAERS Safety Report 7549673-5 (Version None)
Quarter: 2011Q2

REPORT INFORMATION
  Report Type: 
  Country: None (occurrence: None)
  Receive Date: 20110615
  Receipt Date: 20100915
  Transmission Date: 20111010
  Serious: No
  Sender: FDA-Public Use
  Company Number: US-BRISTOL-MYERS SQUIBB COMPANY-15275209

PATIENT
  Age: 86 Year
  Sex: Male

DRUGS (8)
  1. LIPITOR [Concomitant]
  2. VITAMIN B-12 [Concomitant]
  3. AGGRENOX [Concomitant]
  4. FOSINOPRIL SODIUM [Suspect]
  5. AMBIEN [Concomitant]
     Dosage: AT BEDTIME
  6. PROSCAR [Concomitant]
  7. IRON TABLETS [Concomitant]
  8. MONOPRIL [Suspect]
     Dates: end: 20100301

REACTIONS (1)
  - NEUROPATHY PERIPHERAL [None]
